FAERS Safety Report 6225685-9 (Version None)
Quarter: 2009Q2

REPORT INFORMATION
  Report Type: 
  Country: None (occurrence: None)
  Receive Date: 20090612
  Receipt Date: 20090430
  Transmission Date: 20091009
  Serious: No
  Sender: FDA-Public Use
  Company Number: US-ABBOTT-09P-163-0570815-00

PATIENT
  Sex: Female
  Weight: 99.88 kg

DRUGS (4)
  1. HUMIRA [Suspect]
     Indication: RHEUMATOID ARTHRITIS
     Dosage: TOOK 40 MG 1 TIME
     Route: 058
     Dates: start: 20090416, end: 20090416
  2. SCHLAFLY NATURAL VITAMIN [Concomitant]
     Indication: DRUG USE FOR UNKNOWN INDICATION
  3. ALFALFA [Concomitant]
     Indication: DRUG USE FOR UNKNOWN INDICATION
  4. SOY PROTEIN [Concomitant]
     Indication: DRUG USE FOR UNKNOWN INDICATION

REACTIONS (3)
  - ARTHRALGIA [None]
  - NAUSEA [None]
  - RASH [None]
